FAERS Safety Report 21007802 (Version 4)
Quarter: 2022Q3

REPORT INFORMATION
  Report Type: Spontaneous
  Country: AU (occurrence: AU)
  Receive Date: 20220627
  Receipt Date: 20220701
  Transmission Date: 20221027
  Serious: Yes (Hospitalization, Other)
  Sender: FDA-Public Use
  Company Number: AU-BIOVITRUM-2022AU08138

PATIENT
  Age: 57 Year
  Sex: Male

DRUGS (1)
  1. ANAKINRA [Suspect]
     Active Substance: ANAKINRA
     Indication: Plasma cell myeloma
     Route: 065

REACTIONS (3)
  - Pyrexia [Unknown]
  - Bacteraemia [Unknown]
  - Off label use [Unknown]
